FAERS Safety Report 5321568-7 (Version None)
Quarter: 2007Q2

REPORT INFORMATION
  Report Type: 
  Country: None (occurrence: None)
  Receive Date: 20070220
  Receipt Date: 20060727
  Transmission Date: 20071010
  Serious: No
  Sender: FDA-Public Use
  Company Number: TPA2006A01215

PATIENT
  Age: 5 Decade
  Sex: Male
  Weight: 90.7194 kg

DRUGS (3)
  1. ROZEREM [Suspect]
     Indication: POOR QUALITY SLEEP
     Dosage: PER ORAL
     Route: 048
  2. IMITREX [Concomitant]
  3. ALEVE [Concomitant]

REACTIONS (2)
  - NOCTURIA [None]
  - POOR QUALITY SLEEP [None]
